FAERS Safety Report 9552174 (Version 2)
Quarter: 2014Q1

REPORT INFORMATION
  Report Type: Report from Study
  Country: SD (occurrence: SD)
  Receive Date: 20130925
  Receipt Date: 20140106
  Transmission Date: 20141002
  Serious: Yes (Other)
  Sender: FDA-Public Use
  Company Number: PHHY2013SD106277

PATIENT
  Age: 15 Year
  Sex: Male

DRUGS (1)
  1. GLIVEC [Suspect]
     Indication: CHRONIC MYELOID LEUKAEMIA
     Dosage: 400 MG, UNK
     Dates: start: 20071217

REACTIONS (3)
  - Myeloproliferative disorder [Unknown]
  - Erythropoiesis abnormal [Unknown]
  - Bone marrow reticulin fibrosis [Unknown]
